FAERS Safety Report 9767676 (Version 2)
Quarter: 2013Q4

REPORT INFORMATION
  Report Type: Spontaneous
  Country: GB (occurrence: GB)
  Receive Date: 20131217
  Receipt Date: 20131223
  Transmission Date: 20140711
  Serious: Yes (Hospitalization)
  Sender: FDA-Public Use
  Company Number: GB-TEVA-450313ISR

PATIENT
  Age: 62 Year
  Sex: Female

DRUGS (4)
  1. PERINDOPRIL [Suspect]
  2. LYRICA [Interacting]
     Indication: NEURALGIA
     Dosage: 200 MILLIGRAM DAILY; 100 MG, 2X/DAY
     Dates: start: 2008
  3. FUROSEMIDE [Concomitant]
  4. LIDOCAINE [Concomitant]

REACTIONS (10)
  - Drug interaction [Unknown]
  - Cardiac failure congestive [Unknown]
  - Cardiomyopathy [Unknown]
  - Drug ineffective [Unknown]
  - Memory impairment [Unknown]
  - Nerve injury [Unknown]
  - Skin sensitisation [Unknown]
  - Skin irritation [Unknown]
  - Depression [Unknown]
  - Disturbance in attention [Unknown]
